FAERS Safety Report 12790227 (Version 3)
Quarter: 2016Q4

REPORT INFORMATION
  Report Type: Spontaneous
  Country: FR (occurrence: FR)
  Receive Date: 20160928
  Receipt Date: 20161107
  Transmission Date: 20170207
  Serious: Yes (Death, Hospitalization)
  Sender: FDA-Public Use
  Company Number: FR-B.I. PHARMACEUTICALS,INC./RIDGEFIELD-2016-BI-62950FF

PATIENT
  Age: 73 Year
  Sex: Female
  Weight: 48.5 kg

DRUGS (6)
  1. SCOBUREN [Suspect]
     Active Substance: BUTYLSCOPOLAMINE
     Indication: PALLIATIVE CARE
     Dosage: SRENGTH: 20MG/ML
     Route: 042
     Dates: start: 20160914, end: 20160925
  2. DUROGESIC [Suspect]
     Active Substance: FENTANYL
     Indication: PRODUCT USED FOR UNKNOWN INDICATION
     Route: 061
     Dates: start: 20160921
  3. CODOLIPRANE [Suspect]
     Active Substance: ACETAMINOPHEN\CODEINE PHOSPHATE
     Indication: PRODUCT USED FOR UNKNOWN INDICATION
     Route: 048
     Dates: start: 201608, end: 20160908
  4. GILOTRIF [Suspect]
     Active Substance: AFATINIB
     Indication: LUNG ADENOCARCINOMA STAGE IV
     Route: 048
     Dates: start: 20160715, end: 20160908
  5. NEO-CODION /01425101/ [Suspect]
     Active Substance: CODEINE\GRINDELIA HIRSUTULA WHOLE\SULFOGAIACOL
     Indication: PRODUCT USED FOR UNKNOWN INDICATION
     Route: 048
     Dates: start: 201608, end: 20160908
  6. OXYNORM [Suspect]
     Active Substance: OXYCODONE HYDROCHLORIDE
     Indication: DIARRHOEA
     Route: 042
     Dates: start: 20160914, end: 20160925

REACTIONS (12)
  - Generalised oedema [Fatal]
  - Abdominal pain [Fatal]
  - Weight decreased [Unknown]
  - Acute kidney injury [None]
  - Aphthous ulcer [Unknown]
  - Pleural effusion [None]
  - Dry mouth [None]
  - Intestinal obstruction [Fatal]
  - Diarrhoea [Recovered/Resolved]
  - Chest pain [None]
  - Flatulence [None]
  - Neoplasm progression [None]

NARRATIVE: CASE EVENT DATE: 201608
